FAERS Safety Report 4476110-X (Version None)
Quarter: 2004Q3

REPORT INFORMATION
  Report Type: 
  Country: None (occurrence: None)
  Receive Date: 20040923
  Receipt Date: 20040622
  Transmission Date: 20050211
  Serious: No
  Sender: FDA-Public Use
  Company Number: USA040670763

PATIENT
  Age: 53 Year
  Sex: Female
  Weight: 30 kg

DRUGS (5)
  1. FORTEO [Suspect]
     Indication: OSTEOPOROSIS
     Dosage: 20 UG/1 DAY
     Dates: start: 20040613
  2. CALCIUM [Concomitant]
  3. MULTIVITAMIN AND MINERAL SUPPLEMENT [Concomitant]
  4. VITAMIN E [Concomitant]
  5. ESTROGEN [Concomitant]

REACTIONS (2)
  - INJECTION SITE ERYTHEMA [None]
  - INJECTION SITE RASH [None]
